FAERS Safety Report 4292931-0 (Version None)
Quarter: 2004Q1

REPORT INFORMATION
  Report Type: 
  Country: None (occurrence: None)
  Receive Date: 20040212
  Receipt Date: 20030728
  Transmission Date: 20041129
  Serious: No
  Sender: FDA-Public Use
  Company Number: US-GLAXOSMITHKLINE-A0418468A

PATIENT
  Age: 60 Year
  Sex: Male

DRUGS (3)
  1. PAXIL [Suspect]
     Indication: ANGER
     Dosage: 20MG PER DAY
     Route: 048
     Dates: start: 20000101, end: 20030516
  2. PAXIL CR [Suspect]
     Indication: ANGER
     Route: 048
     Dates: start: 20030516
  3. PHENYTOIN [Concomitant]

REACTIONS (2)
  - NERVOUSNESS [None]
  - SEXUAL DYSFUNCTION [None]
